FAERS Safety Report 11586537 (Version 1)
Quarter: 2015Q3

REPORT INFORMATION
  Report Type: Spontaneous
  Country: US (occurrence: US)
  Receive Date: 20150916
  Receipt Date: 20150916
  Transmission Date: 20151125
  Serious: No
  Sender: FDA-Public Use
  Company Number: US-ELI_LILLY_AND_COMPANY-US200803001287

PATIENT
  Age: 73 Year
  Sex: Male

DRUGS (1)
  1. FORTEO [Suspect]
     Active Substance: TERIPARATIDE
     Indication: OSTEOPOROSIS
     Dates: start: 20080212

REACTIONS (5)
  - Injection site erythema [Recovered/Resolved]
  - Injection site bruising [Recovered/Resolved]
  - Injection site reaction [Not Recovered/Not Resolved]
  - Injection site pain [Not Recovered/Not Resolved]
  - Injury associated with device [Recovered/Resolved]

NARRATIVE: CASE EVENT DATE: 20080319
